FAERS Safety Report 11279301 (Version 1)
Quarter: 2015Q3

REPORT INFORMATION
  Report Type: Spontaneous
  Country: US (occurrence: None)
  Receive Date: 20150715
  Receipt Date: 20150715
  Transmission Date: 20151125
  Serious: Yes (Hospitalization, Other)
  Sender: FDA-Public Use
  Company Number: 2015HINLIT0563

PATIENT
  Age: 74 Year
  Sex: Female

DRUGS (3)
  1. LINEZOLID (LINEZOLID) UNKNOWN [Suspect]
     Active Substance: LINEZOLID
     Indication: PRODUCT USED FOR UNKNOWN INDICATION
     Route: 048
  2. DAPTOMYCIN (DAPTOMYCIN) [Suspect]
     Active Substance: DAPTOMYCIN
     Indication: PRODUCT USED FOR UNKNOWN INDICATION
  3. CEFTRIAXONE (CEFTRIAXONE) [Concomitant]
     Active Substance: CEFTRIAXONE

REACTIONS (4)
  - Eosinophilic pneumonia [None]
  - Respiratory failure [None]
  - Condition aggravated [None]
  - Oedema peripheral [None]
